FAERS Safety Report 5017749-2 (Version None)
Quarter: 2006Q2

REPORT INFORMATION
  Report Type: 
  Country: None (occurrence: None)
  Receive Date: 20060530
  Receipt Date: 20050513
  Transmission Date: 20061013
  Serious: Yes (Hospitalization)
  Sender: FDA-Public Use
  Company Number: 2005069167

PATIENT
  Age: 63 Year
  Sex: Female
  Weight: 85 kg

DRUGS (3)
  1. LYRICA [Suspect]
     Indication: TRIGEMINAL NEURALGIA
     Dosage: 2 IN 1 D, ORAL
     Route: 048
     Dates: start: 20050301
  2. SINTHROME                   (ACENOCOUMAROL) [Suspect]
     Indication: PROTEIN C DEFICIENCY
     Dates: start: 20000101
  3. SINTHROME                   (ACENOCOUMAROL) [Suspect]
     Indication: PROTEIN S DEFICIENCY
     Dates: start: 20000101

REACTIONS (1)
  - PROTHROMBIN TIME SHORTENED [None]
